FAERS Safety Report 19377371 (Version 1)
Quarter: 2021Q2

REPORT INFORMATION
  Report Type: Report from Study
  Country: FR (occurrence: FR)
  Receive Date: 20210604
  Receipt Date: 20210604
  Transmission Date: 20210717
  Serious: Yes (Hospitalization)
  Sender: FDA-Public Use
  Company Number: FR-MYLANLABS-2021M1032424

PATIENT
  Age: 28 Year
  Sex: Female
  Weight: 50 kg

DRUGS (13)
  1. UPTRAVI [Suspect]
     Active Substance: SELEXIPAG
     Indication: HERITABLE PULMONARY ARTERIAL HYPERTENSION
     Dosage: 1200 MICROGRAM, QD
     Route: 048
     Dates: start: 20191213
  2. INFLUENZA VACCINE [Concomitant]
     Active Substance: INFLUENZA VIRUS VACCINE
     Dosage: UNK
  3. AMBRISENTAN [Suspect]
     Active Substance: AMBRISENTAN
     Indication: PULMONARY ARTERIAL HYPERTENSION
     Dosage: UNK
     Dates: start: 202009
  4. AMBRISENTAN [Suspect]
     Active Substance: AMBRISENTAN
     Dosage: 10 MILLIGRAM
  5. UPTRAVI [Suspect]
     Active Substance: SELEXIPAG
     Dosage: 400 MICROGRAM, QD
     Route: 048
     Dates: start: 20191129
  6. UPTRAVI [Suspect]
     Active Substance: SELEXIPAG
     Dosage: 2000 MICROGRAM, QD
     Route: 048
     Dates: start: 20200626
  7. UPTRAVI [Suspect]
     Active Substance: SELEXIPAG
     Dosage: 2800 MICROGRAM, QD
     Route: 048
     Dates: start: 20200925
  8. UPTRAVI [Suspect]
     Active Substance: SELEXIPAG
     Dosage: 800 MICROGRAM, QD
     Route: 048
     Dates: start: 20191206
  9. UPTRAVI [Suspect]
     Active Substance: SELEXIPAG
     Dosage: 3200 MICROGRAM, QD
     Route: 048
     Dates: start: 20201011
  10. UPTRAVI [Suspect]
     Active Substance: SELEXIPAG
     Dosage: 1600 MICROGRAM, QD
     Route: 048
     Dates: start: 20200612
  11. TADALAFIL. [Concomitant]
     Active Substance: TADALAFIL
     Indication: PULMONARY ARTERIAL HYPERTENSION
     Dosage: UNK
  12. UPTRAVI [Suspect]
     Active Substance: SELEXIPAG
     Dosage: 2400 MICROGRAM, QD
     Route: 048
     Dates: start: 20200911
  13. UPTRAVI [Suspect]
     Active Substance: SELEXIPAG
     Dosage: 1000 MICROGRAM, QD
     Route: 048
     Dates: start: 20200606

REACTIONS (15)
  - Vertigo [Recovered/Resolved]
  - Dyspnoea exertional [Not Recovered/Not Resolved]
  - Fatigue [Recovered/Resolved]
  - Flushing [Recovering/Resolving]
  - Nausea [Recovered/Resolved]
  - Tachycardia [Recovered/Resolved]
  - Gingival disorder [Unknown]
  - Headache [Not Recovered/Not Resolved]
  - Catheterisation cardiac [Recovered/Resolved]
  - Nasal congestion [Not Recovered/Not Resolved]
  - Dizziness [Not Recovered/Not Resolved]
  - Pain in jaw [Not Recovered/Not Resolved]
  - Ocular hyperaemia [Recovering/Resolving]
  - Head discomfort [Not Recovered/Not Resolved]
  - Dyspnoea [Not Recovered/Not Resolved]

NARRATIVE: CASE EVENT DATE: 20200612
